FAERS Safety Report 7148023-6 (Version None)
Quarter: 2010Q4

REPORT INFORMATION
  Report Type: 
  Country: None (occurrence: None)
  Receive Date: 20101206
  Receipt Date: 20101206
  Transmission Date: 20110411
  Serious: Yes (Other)
  Sender: FDA-Public Use
  Company Number: None

PATIENT
  Age: 45 Year
  Sex: Female
  Weight: 74.8435 kg

DRUGS (3)
  1. CYMBALTA [Suspect]
     Indication: ANXIETY
     Dosage: 60MG 1 PER DAY PO
     Route: 048
     Dates: start: 20061010, end: 20101122
  2. CYMBALTA [Suspect]
     Indication: DEPRESSION
     Dosage: 60MG 1 PER DAY PO
     Route: 048
     Dates: start: 20061010, end: 20101122
  3. CYMBALTA [Suspect]
     Indication: MIGRAINE
     Dosage: 60MG 1 PER DAY PO
     Route: 048
     Dates: start: 20061010, end: 20101122

REACTIONS (13)
  - ABDOMINAL PAIN UPPER [None]
  - ASTHENIA [None]
  - DIZZINESS [None]
  - EMOTIONAL DISORDER [None]
  - FATIGUE [None]
  - HEADACHE [None]
  - HOT FLUSH [None]
  - ILL-DEFINED DISORDER [None]
  - MYALGIA [None]
  - NIGHTMARE [None]
  - PARAESTHESIA [None]
  - WEIGHT INCREASED [None]
  - WITHDRAWAL SYNDROME [None]
